FAERS Safety Report 13741268 (Version 1)
Quarter: 2017Q3

REPORT INFORMATION
  Report Type: Spontaneous
  Country: US (occurrence: US)
  Receive Date: 20170711
  Receipt Date: 20170711
  Transmission Date: 20171127
  Serious: Yes (Hospitalization)
  Sender: FDA-Public Use
  Company Number: None

PATIENT
  Age: 46 Year
  Sex: Female
  Weight: 90 kg

DRUGS (13)
  1. AMLOTAPIN [Concomitant]
  2. COLACE [Concomitant]
     Active Substance: DOCUSATE SODIUM
  3. FARXIGA [Suspect]
     Active Substance: DAPAGLIFLOZIN PROPANEDIOL
     Indication: TYPE 2 DIABETES MELLITUS
     Dosage: ?          OTHER STRENGTH:MG;QUANTITY:1 TABLET(S);?
     Route: 048
     Dates: start: 20170601, end: 20170614
  4. PRILOSEC [Concomitant]
     Active Substance: OMEPRAZOLE MAGNESIUM
  5. FERROUS SULFATE. [Concomitant]
     Active Substance: FERROUS SULFATE
  6. METFORMIN [Concomitant]
     Active Substance: METFORMIN HYDROCHLORIDE
  7. LASARTIN [Concomitant]
  8. VENTLAFLAXIN [Concomitant]
  9. VITAMIN C [Concomitant]
     Active Substance: ASCORBIC ACID
  10. VITAMIN D [Concomitant]
     Active Substance: CHOLECALCIFEROL
  11. TANZIUM [Concomitant]
  12. NORETHINDRONE. [Concomitant]
     Active Substance: NORETHINDRONE
  13. ZOLPIDEN [Concomitant]

REACTIONS (2)
  - Pain [None]
  - Haemorrhage [None]

NARRATIVE: CASE EVENT DATE: 20170610
